FAERS Safety Report 7109009-0 (Version None)
Quarter: 2010Q4

REPORT INFORMATION
  Report Type: 
  Country: None (occurrence: None)
  Receive Date: 20101117
  Receipt Date: 20101111
  Transmission Date: 20110411
  Serious: Yes (Other)
  Sender: FDA-Public Use
  Company Number: DE-PFIZER INC-2010145782

PATIENT
  Age: 81 Year
  Sex: Female

DRUGS (1)
  1. DETRUSITOL [Suspect]
     Dosage: UNK

REACTIONS (1)
  - CUTANEOUS LUPUS ERYTHEMATOSUS [None]
